FAERS Safety Report 7382590-2 (Version None)
Quarter: 2011Q1

REPORT INFORMATION
  Report Type: 
  Country: None (occurrence: None)
  Receive Date: 20110329
  Receipt Date: 20110314
  Transmission Date: 20110831
  Serious: Yes (Other)
  Sender: FDA-Public Use
  Company Number: US-BAYER-201018755NA

PATIENT
  Sex: Female

DRUGS (22)
  1. CELEXA [Concomitant]
     Dosage: 20 MG, QD
  2. OMNISCAN [Suspect]
     Indication: IMAGING PROCEDURE
  3. LORCET-HD [Concomitant]
     Indication: PAIN
     Dosage: 10/650 MG, UNK
  4. PROTONIX [Concomitant]
     Dosage: 40 MG, QD
  5. VIBRAMYCIN [Concomitant]
     Dosage: 100 MG, UNK
  6. MULTIHANCE [Suspect]
     Indication: IMAGING PROCEDURE
  7. ANTIGLAUCOMA PREPARATIONS AND MIOTICS [Concomitant]
  8. OPTIMARK [Suspect]
     Indication: IMAGING PROCEDURE
  9. ANTIVERT [Concomitant]
  10. MAGNEVIST [Suspect]
     Indication: NUCLEAR MAGNETIC RESONANCE IMAGING
     Dosage: UNK
     Dates: start: 20040709, end: 20040709
  11. PROHANCE [Suspect]
     Indication: NUCLEAR MAGNETIC RESONANCE IMAGING
     Dosage: 15 ML, UNK
     Route: 042
     Dates: start: 20030114, end: 20030114
  12. MS CONTIN [Concomitant]
     Dosage: 60 MG, QD
  13. EFFEXOR [Concomitant]
     Dosage: 37.5 MG, BID
  14. GADOLINIUM IN UNSPECIFIED DRUG [Suspect]
     Indication: NUCLEAR MAGNETIC RESONANCE IMAGING
     Dosage: UNK
     Dates: start: 20010420, end: 20010420
  15. GADOLINIUM IN UNSPECIFIED DRUG [Suspect]
     Dosage: UNK
     Route: 042
     Dates: start: 20020520, end: 20020520
  16. GADOLINIUM IN UNSPECIFIED DRUG [Suspect]
     Dosage: UNK
     Dates: start: 20060524, end: 20060524
  17. PROHANCE [Suspect]
     Dosage: UNK
     Dates: start: 20061020, end: 20061020
  18. MS CONTIN [Concomitant]
     Indication: PAIN
     Dosage: 100 MG, EVERY 12 HOURS PRN
  19. PERCOCET [Concomitant]
     Indication: PAIN
     Dosage: 10/325 MG, QID
  20. CIPRO [Concomitant]
     Dosage: 750 MG, BID X10 DAYS
  21. MAGNEVIST [Suspect]
  22. AMBIEN [Concomitant]
     Indication: PAIN
     Dosage: 10 MG, HS

REACTIONS (20)
  - MUSCLE SPASMS [None]
  - SCAR [None]
  - SKIN ATROPHY [None]
  - DEFORMITY [None]
  - XEROSIS [None]
  - ARTHRALGIA [None]
  - SKIN LESION [None]
  - SKIN HYPOPIGMENTATION [None]
  - NEPHROGENIC SYSTEMIC FIBROSIS [None]
  - SKIN TIGHTNESS [None]
  - LICHENIFICATION [None]
  - SKIN DISORDER [None]
  - SKIN DISCOLOURATION [None]
  - SKIN HYPERTROPHY [None]
  - SKIN HYPERPIGMENTATION [None]
  - PAIN IN EXTREMITY [None]
  - GENERAL PHYSICAL HEALTH DETERIORATION [None]
  - PRURITUS [None]
  - MUSCULOSKELETAL PAIN [None]
  - PEAU D'ORANGE [None]
